FAERS Safety Report 4567953-2 (Version None)
Quarter: 2005Q1

REPORT INFORMATION
  Report Type: 
  Country: None (occurrence: None)
  Receive Date: 20050202
  Receipt Date: 20041214
  Transmission Date: 20050727
  Serious: No
  Sender: FDA-Public Use
  Company Number: US-GLAXOSMITHKLINE-A0537258A

PATIENT
  Sex: Female

DRUGS (1)
  1. NAVELBINE [Suspect]
     Indication: BREAST CANCER
     Dosage: 22MGM2 CYCLIC
     Route: 042
     Dates: start: 20040101, end: 20040101

REACTIONS (2)
  - BACK PAIN [None]
  - NECK PAIN [None]
